FAERS Safety Report 7440775 (Version 4)
Quarter: 2012Q4

REPORT INFORMATION
  Report Type: 
  Country: JP (occurrence: JP)
  Receive Date: 20100629
  Receipt Date: 20121008
  Transmission Date: 20130627
  Serious: Yes (Life-Threatening, Hospitalization)
  Sender: FDA-Public Use
  Company Number: JP-SANOFI-AVENTIS-2010SA036358

PATIENT
  Age: 35 Year
  Sex: Female

DRUGS (3)
  1. MYSLEE [Suspect]
     Indication: SUICIDE ATTEMPT
     Route: 048
     Dates: start: 20090902, end: 20090902
  2. AMLODIN [Suspect]
     Indication: SUICIDE ATTEMPT
     Route: 048
     Dates: start: 20090902, end: 20090902
  3. VOGLIBOSE [Suspect]
     Indication: SUICIDE ATTEMPT
     Route: 048
     Dates: start: 20090902, end: 20090902

REACTIONS (7)
  - Hypotension [Recovered/Resolved]
  - Shock [Recovered/Resolved]
  - Rhabdomyolysis [Recovered/Resolved]
  - Renal tubular necrosis [Recovered/Resolved]
  - Renal failure acute [Recovered/Resolved]
  - Coma scale abnormal [Recovered/Resolved]
  - Overdose [Unknown]
